FAERS Safety Report 6102179-2 (Version None)
Quarter: 2009Q1

REPORT INFORMATION
  Report Type: 
  Country: None (occurrence: None)
  Receive Date: 20090304
  Receipt Date: 20090225
  Transmission Date: 20090719
  Serious: Yes (Other)
  Sender: FDA-Public Use
  Company Number: GB-BIOGENIDEC-2009BI006255

PATIENT
  Sex: Female

DRUGS (6)
  1. AVONEX [Suspect]
     Indication: MULTIPLE SCLEROSIS
     Route: 030
     Dates: start: 20040101
  2. TRAMADOL HCL [Concomitant]
     Route: 048
  3. OMEPRAZOLE [Concomitant]
     Route: 048
  4. GABAPENTIN [Concomitant]
     Route: 048
  5. NULYTELY [Concomitant]
     Route: 048
  6. PARACETAMOL [Concomitant]
     Route: 048

REACTIONS (1)
  - LUNG NEOPLASM MALIGNANT [None]
